FAERS Safety Report 12707832 (Version 1)
Quarter: 2016Q3

REPORT INFORMATION
  Report Type: Spontaneous
  Country: DE (occurrence: DE)
  Receive Date: 20160901
  Receipt Date: 20160901
  Transmission Date: 20161109
  Serious: Yes (Other)
  Sender: FDA-Public Use
  Company Number: PHHY2016DE119412

PATIENT
  Sex: Male

DRUGS (1)
  1. TRILEPTAL [Suspect]
     Active Substance: OXCARBAZEPINE
     Indication: PRODUCT USED FOR UNKNOWN INDICATION
     Dosage: 900 MG, QD (300 AND 600MG)
     Route: 065
     Dates: start: 2004

REACTIONS (4)
  - Generalised tonic-clonic seizure [Unknown]
  - Hemiplegia [Unknown]
  - Epilepsy [Unknown]
  - Hyponatraemia [Unknown]
